FAERS Safety Report 17968820 (Version 2)
Quarter: 2020Q3

REPORT INFORMATION
  Report Type: Spontaneous
  Country: CN (occurrence: CN)
  Receive Date: 20200701
  Receipt Date: 20200716
  Transmission Date: 20201103
  Serious: Yes (Other)
  Sender: FDA-Public Use
  Company Number: CN-JNJFOC-20200629718

PATIENT
  Age: 42 Year
  Sex: Male
  Weight: 65 kg

DRUGS (4)
  1. SPORANOX [Suspect]
     Active Substance: ITRACONAZOLE
     Indication: TINEA MANUUM
     Dosage: PATIENT USED 8 CAPSULES
     Route: 048
     Dates: start: 20200613
  2. SPORANOX [Suspect]
     Active Substance: ITRACONAZOLE
     Indication: TINEA PEDIS
  3. DAKTARIN [Suspect]
     Active Substance: MICONAZOLE NITRATE
     Indication: TINEA PEDIS
  4. DAKTARIN [Suspect]
     Active Substance: MICONAZOLE NITRATE
     Indication: TINEA MANUUM
     Route: 061

REACTIONS (3)
  - Seizure [Unknown]
  - Liver injury [Unknown]
  - Drug ineffective [Unknown]
